FAERS Safety Report 6775107-4 (Version None)
Quarter: 2010Q2

REPORT INFORMATION
  Report Type: 
  Country: None (occurrence: None)
  Receive Date: 20100617
  Receipt Date: 20100615
  Transmission Date: 20101027
  Serious: Yes (Other)
  Sender: FDA-Public Use
  Company Number: D0067980A

PATIENT

DRUGS (2)
  1. REQUIP [Suspect]
     Route: 048
  2. ROPINIROLE [Concomitant]
     Route: 048

REACTIONS (2)
  - HALLUCINATION [None]
  - PSYCHOTIC DISORDER [None]
